FAERS Safety Report 7396026-9 (Version None)
Quarter: 2011Q1

REPORT INFORMATION
  Report Type: 
  Country: None (occurrence: None)
  Receive Date: 20110325
  Receipt Date: 20110317
  Transmission Date: 20110831
  Serious: Yes (Hospitalization)
  Sender: FDA-Public Use
  Company Number: LEO-2011-00264

PATIENT
  Age: 70 Year
  Sex: Male

DRUGS (1)
  1. INNOHEP [Suspect]
     Indication: PRODUCT USED FOR UNKNOWN INDICATION
     Dosage: 4500 IU (4500 IU,1 IN 1 D),SUBCUTANEOUS
     Route: 058
     Dates: start: 20110101

REACTIONS (1)
  - DEEP VEIN THROMBOSIS [None]
